FAERS Safety Report 7479464-5 (Version None)
Quarter: 2011Q2

REPORT INFORMATION
  Report Type: 
  Country: None (occurrence: None)
  Receive Date: 20110513
  Receipt Date: 20081016
  Transmission Date: 20111010
  Serious: Yes (Death, Hospitalization, Other)
  Sender: FDA-Public Use
  Company Number: US-BAYER-200836237NA

PATIENT
  Age: 76 Year
  Sex: Male
  Weight: 83.9 kg

DRUGS (37)
  1. CONTRAST MEDIA [Concomitant]
     Indication: CATHETERISATION CARDIAC
     Dosage: 80 ML, UNK
     Dates: start: 20040211
  2. NATRECOR [Concomitant]
     Dosage: UNK
     Dates: end: 20040213
  3. BUMEX [Concomitant]
     Dosage: UNK
     Route: 042
     Dates: start: 20040214
  4. EPINEPHRINE [Concomitant]
     Dosage: UNK
     Dates: start: 20040217
  5. ASPIRIN [Concomitant]
     Dosage: 81 MG, UNK
     Route: 048
     Dates: start: 20020815
  6. DIURETICS [Concomitant]
     Indication: FLUID OVERLOAD
     Dosage: UNK
     Dates: end: 20040201
  7. NEPRO [Concomitant]
     Dosage: 43 ML/HR
     Dates: start: 20040215
  8. ZOSYN [Concomitant]
     Indication: SEPSIS
     Dosage: UNK
     Dates: start: 20040217
  9. NADOLOL [Concomitant]
     Dosage: 40 MG, UNK
     Route: 048
     Dates: start: 20020815
  10. LISINOPRIL [Concomitant]
     Dosage: 20 MG, UNK
     Route: 048
     Dates: start: 20030617
  11. DOPAMINE HCL [Concomitant]
     Dosage: UNK
     Route: 041
     Dates: start: 20040213
  12. NORMAL SALINE [Concomitant]
     Dosage: UNK
     Dates: start: 20040217, end: 20040201
  13. GLYBURIDE [Concomitant]
     Dosage: 10 MG, UNK
     Route: 048
     Dates: start: 20020815
  14. HEPARIN [Concomitant]
     Dosage: 10.000 UNITS/500 ML
     Route: 042
     Dates: start: 20040212
  15. SOLUTIONS FOR PARENTERAL NUTRITION [Concomitant]
     Dosage: UNK
     Dates: start: 20040213
  16. NATRECOR [Concomitant]
     Dosage: UNK
     Route: 041
     Dates: start: 20040216
  17. AMIODARONE HCL [Concomitant]
     Dosage: UNK
     Dates: start: 20040215
  18. PROPOFOL [Concomitant]
     Dosage: UNK
     Dates: start: 20040216
  19. NORMAL SALINE [Concomitant]
     Dosage: UNK
     Dates: start: 20040217
  20. VANCOMYCIN [Concomitant]
     Indication: SEPSIS
     Dosage: UNK
     Dates: start: 20040217
  21. TRICOR [Concomitant]
     Dosage: 160 MG, UNK
     Route: 048
     Dates: start: 20020815
  22. LASIX [Concomitant]
     Dosage: 40 MG, UNK
     Route: 048
     Dates: start: 20020815
  23. XALATAN [Concomitant]
     Dosage: 0.005% ONE DROP EACH EYE
     Route: 047
     Dates: start: 20030617
  24. FENTANYL [Concomitant]
     Dosage: 8
     Route: 042
     Dates: start: 20040212
  25. ANGIOTENSIN II ANTAGONISTS [Concomitant]
     Dosage: UNK
     Dates: end: 20040201
  26. DIURETICS [Concomitant]
     Dosage: UNK
     Dates: start: 20040212
  27. DIAMOX [Concomitant]
     Dosage: UNK
     Route: 042
     Dates: start: 20040214
  28. LACTATED RINGER'S [Concomitant]
     Dosage: 250 ML/HR
     Dates: start: 20040217
  29. AVANDIA [Concomitant]
     Dosage: 8 MG, UNK
     Route: 048
     Dates: start: 20020815
  30. SEVO [Concomitant]
     Dosage: 2
     Dates: start: 20040212
  31. DIURETICS [Concomitant]
     Dosage: UNK
     Route: 041
     Dates: start: 20040213
  32. SODIUM BICARBONATE [Concomitant]
     Dosage: UNK
     Dates: start: 20040213
  33. NORVASC [Concomitant]
     Dosage: 10 MG, UNK
     Route: 048
     Dates: start: 20020815
  34. ZINACEF [Concomitant]
     Dosage: 15 G, UNK, IVPB
     Dates: start: 20040212
  35. MANNITOL [Concomitant]
     Dosage: 50 G, UNK
     Route: 042
     Dates: start: 20040212
  36. TRASYLOL [Suspect]
     Indication: CORONARY ARTERY BYPASS
     Dosage: UNK
     Route: 042
     Dates: start: 20040212
  37. DIALYSATE [Concomitant]
     Dosage: 1500 ML/HR
     Dates: start: 20040217

REACTIONS (12)
  - RENAL IMPAIRMENT [None]
  - RENAL FAILURE [None]
  - UNEVALUABLE EVENT [None]
  - STRESS [None]
  - EMOTIONAL DISTRESS [None]
  - FEAR [None]
  - PAIN [None]
  - RENAL INJURY [None]
  - ANXIETY [None]
  - INJURY [None]
  - ANHEDONIA [None]
  - DEATH [None]
